FAERS Safety Report 7501762-7 (Version None)
Quarter: 2011Q2

REPORT INFORMATION
  Report Type: 
  Country: None (occurrence: None)
  Receive Date: 20110523
  Receipt Date: 20110523
  Transmission Date: 20111010
  Serious: Yes (Hospitalization)
  Sender: FDA-Public Use
  Company Number: None

PATIENT
  Age: 92 Year
  Sex: Female
  Weight: 58.8 kg

DRUGS (16)
  1. CERTAGEN [Concomitant]
  2. AFRIN [Concomitant]
  3. DIGOXIN [Suspect]
     Indication: ATRIAL FIBRILLATION
     Dosage: 125MCG DAILY PO CHRONIC W/RECENT INCREASE
     Route: 048
  4. POTASSIUM CHLORIDE [Concomitant]
  5. LASIX [Concomitant]
  6. TRAVATAN [Concomitant]
  7. AYR GEL [Concomitant]
  8. COUMADIN [Concomitant]
  9. SPIRONOLACTONE [Concomitant]
  10. BACTROBAN [Concomitant]
  11. CEPHALEXIN [Concomitant]
  12. VIT B12 [Concomitant]
  13. NIASPAN [Concomitant]
  14. LISINOPRIL [Concomitant]
  15. ARICEPT [Concomitant]
  16. COREG [Concomitant]

REACTIONS (3)
  - TOXICITY TO VARIOUS AGENTS [None]
  - UROSEPSIS [None]
  - SOMNOLENCE [None]
